FAERS Safety Report 25088337 (Version 2)
Quarter: 2025Q3

REPORT INFORMATION
  Report Type: Report from Study
  Country: US (occurrence: US)
  Receive Date: 20250318
  Receipt Date: 20250910
  Transmission Date: 20251020
  Serious: No
  Sender: SUNOVION
  Company Number: US-SMPA-2025SPA002168AA

PATIENT
  Age: 63 Year
  Sex: Male

DRUGS (21)
  1. ORGOVYX [Suspect]
     Active Substance: RELUGOLIX
     Indication: Prostate cancer
     Dosage: 360 MG, SINGLE
     Route: 048
     Dates: start: 202206, end: 202206
  2. ORGOVYX [Suspect]
     Active Substance: RELUGOLIX
     Dosage: 120 MG, QD
     Route: 048
     Dates: start: 202206
  3. ALPRAZOLAM [Concomitant]
     Active Substance: ALPRAZOLAM
  4. ASPIRIN [Concomitant]
     Active Substance: ASPIRIN
  5. ATORVASTATIN [Concomitant]
     Active Substance: ATORVASTATIN
  6. VITAMIN B12 [Concomitant]
     Active Substance: CYANOCOBALAMIN
  7. ERLEADA [Concomitant]
     Active Substance: APALUTAMIDE
  8. FENBENDAZOLE [Concomitant]
     Active Substance: FENBENDAZOLE
  9. FLOMAX [Concomitant]
     Active Substance: TAMSULOSIN HYDROCHLORIDE
  10. IVERMECTIN [Concomitant]
     Active Substance: IVERMECTIN
  11. KLOR-CON M20 [Concomitant]
     Active Substance: POTASSIUM CHLORIDE
  12. NORCO [Concomitant]
     Active Substance: ACETAMINOPHEN\HYDROCODONE BITARTRATE
  13. PREDNISONE [Concomitant]
     Active Substance: PREDNISONE
  14. SILDENAFIL [Concomitant]
     Active Substance: SILDENAFIL
  15. TADALAFIL [Concomitant]
     Active Substance: TADALAFIL
  16. TRIAMCINOLONE ACETONIDE [Concomitant]
     Active Substance: TRIAMCINOLONE ACETONIDE
  17. VITAMIN B6 [Concomitant]
     Active Substance: PYRIDOXINE HYDROCHLORIDE
  18. VITAMIN E [Concomitant]
     Active Substance: .ALPHA.-TOCOPHEROL
     Route: 048
  19. Dynamic nutrition reswell [Concomitant]
  20. METHYLENE BLUE [Concomitant]
     Active Substance: METHYLENE BLUE
  21. THERAFLU EXPRESSMAX DAYTIME SEVERE COLD AND COUGH [Concomitant]
     Active Substance: ACETAMINOPHEN\DEXTROMETHORPHAN HYDROBROMIDE\PHENYLEPHRINE HYDROCHLORIDE

REACTIONS (5)
  - Mood swings [Unknown]
  - Fatigue [Unknown]
  - Asthenia [Unknown]
  - Loss of libido [Unknown]
  - Hot flush [Unknown]
